FAERS Safety Report 21446682 (Version 11)
Quarter: 2024Q2

REPORT INFORMATION
  Report Type: Spontaneous
  Country: US (occurrence: US)
  Receive Date: 20221012
  Receipt Date: 20240618
  Transmission Date: 20240715
  Serious: Yes (Life-Threatening, Other)
  Sender: FDA-Public Use
  Company Number: US-PFIZER INC-PV202200079927

PATIENT
  Age: 69 Year
  Sex: Female
  Weight: 67.13 kg

DRUGS (2)
  1. IBRANCE [Suspect]
     Active Substance: PALBOCICLIB
     Dosage: 100 MG
  2. DIAZEPAM [Concomitant]
     Active Substance: DIAZEPAM
     Indication: Tremor
     Dosage: UNK

REACTIONS (14)
  - Near death experience [Unknown]
  - Neoplasm progression [Unknown]
  - Fatigue [Unknown]
  - Fall [Unknown]
  - Gait disturbance [Unknown]
  - Irritability [Unknown]
  - Abdominal pain [Unknown]
  - White blood cell count decreased [Unknown]
  - Nausea [Unknown]
  - Diarrhoea [Unknown]
  - Illness [Recovering/Resolving]
  - Cough [Recovering/Resolving]
  - Rhinovirus infection [Recovering/Resolving]
  - Dental care [Unknown]

NARRATIVE: CASE EVENT DATE: 20221001
